FAERS Safety Report 24010954 (Version 1)
Quarter: 2024Q2

REPORT INFORMATION
  Report Type: Spontaneous
  Country: US (occurrence: None)
  Receive Date: 20240624
  Receipt Date: 20240624
  Transmission Date: 20240715
  Serious: Yes (Other)
  Sender: FDA-Public Use
  Company Number: None

PATIENT
  Age: 69 Year
  Sex: Female
  Weight: 46.35 kg

DRUGS (1)
  1. ROMOSOZUMAB [Suspect]
     Active Substance: ROMOSOZUMAB
     Indication: Osteoporosis
     Dosage: 210 MG MONTHLY SUBCUTANEOUS ?
     Route: 058
     Dates: start: 20240222, end: 20240617

REACTIONS (2)
  - Coronary artery stenosis [None]
  - Troponin increased [None]

NARRATIVE: CASE EVENT DATE: 20240619
